FAERS Safety Report 9043574 (Version 1)
Quarter: 2013Q1

REPORT INFORMATION
  Report Type: Report from Study
  Country: US (occurrence: US)
  Receive Date: 20130129
  Receipt Date: 20130129
  Transmission Date: 20140127
  Serious: Yes (Hospitalization)
  Sender: FDA-Public Use
  Company Number: US-ABBOTT-12P-163-0914976-00

PATIENT
  Sex: Male
  Weight: 74 kg

DRUGS (10)
  1. HUMIRA 40 MG/0.8 ML PEN [Suspect]
     Indication: CROHN^S DISEASE
     Dates: start: 201104
  2. LISINOPRIL [Concomitant]
     Indication: HYPERTENSION
  3. PROCARDIA [Concomitant]
     Indication: HYPERTENSION
  4. FERROUS SULFATE [Concomitant]
     Indication: BLOOD IRON DECREASED
  5. ZOLOFT [Concomitant]
     Indication: DEPRESSION
  6. BONIVA [Concomitant]
     Indication: OSTEOPENIA
     Dates: start: 2010
  7. BONIVA [Concomitant]
     Indication: STEROID THERAPY
  8. LORAZEPAM [Concomitant]
     Indication: SLEEP DISORDER THERAPY
  9. TEMAZEPAM [Concomitant]
     Indication: SLEEP DISORDER THERAPY
  10. VITAMINS [Concomitant]
     Indication: VITAMIN SUPPLEMENTATION

REACTIONS (2)
  - Lung infection [Recovered/Resolved]
  - Urinary tract infection [Recovered/Resolved]
